FAERS Safety Report 9477905 (Version 1)
Quarter: 2013Q3

REPORT INFORMATION
  Report Type: Spontaneous
  Country: US (occurrence: None)
  Receive Date: 20130826
  Receipt Date: 20130826
  Transmission Date: 20140515
  Serious: Yes (Hospitalization)
  Sender: FDA-Public Use
  Company Number: None

PATIENT
  Age: 59 Year
  Sex: Male
  Weight: 72 kg

DRUGS (2)
  1. HYDROCHLOROTHIAZIDE [Suspect]
     Dosage: 12.5 MG EVERY DAY PO
     Dates: start: 20130607, end: 20130814
  2. LISINOPRIL [Suspect]
     Dosage: 20 MG EVERY DAY PO
     Dates: start: 20080722, end: 20130814

REACTIONS (2)
  - Hypotension [None]
  - Renal failure acute [None]
